FAERS Safety Report 7586248-6 (Version None)
Quarter: 2011Q3

REPORT INFORMATION
  Report Type: 
  Country: None (occurrence: None)
  Receive Date: 20110701
  Receipt Date: 20110623
  Transmission Date: 20111222
  Serious: Yes (Hospitalization)
  Sender: FDA-Public Use
  Company Number: US-SANOFI-AVENTIS-2011SA040400

PATIENT
  Age: 63 Year
  Sex: Female

DRUGS (4)
  1. LANTUS [Suspect]
     Dosage: DOSE:10 UNIT(S)
     Route: 058
     Dates: start: 20110616
  2. SOLOSTAR [Suspect]
     Indication: TYPE 2 DIABETES MELLITUS
     Dates: start: 20110616
  3. AMARYL [Suspect]
     Route: 065
  4. LANTUS [Suspect]
     Indication: TYPE 2 DIABETES MELLITUS
     Dosage: DOSE:65 UNIT(S)
     Route: 058

REACTIONS (3)
  - INFECTED SKIN ULCER [None]
  - HYPERGLYCAEMIA [None]
  - DIABETIC FOOT [None]
